FAERS Safety Report 9603876 (Version 1)
Quarter: 2013Q4

REPORT INFORMATION
  Report Type: Spontaneous
  Country: US (occurrence: US)
  Receive Date: 20131008
  Receipt Date: 20131008
  Transmission Date: 20140711
  Serious: Yes (Hospitalization)
  Sender: FDA-Public Use
  Company Number: US-BIOGENIDEC-2013BI095074

PATIENT
  Age: 68 Year
  Sex: Female

DRUGS (1)
  1. AVONEX [Suspect]
     Indication: MULTIPLE SCLEROSIS
     Route: 030
     Dates: start: 20010611

REACTIONS (4)
  - Surgery [Recovered/Resolved]
  - Cystitis [Recovered/Resolved]
  - Abasia [Recovered/Resolved]
  - Weight bearing difficulty [Not Recovered/Not Resolved]
